FAERS Safety Report 12582428 (Version 1)
Quarter: 2016Q3

REPORT INFORMATION
  Report Type: Spontaneous
  Country: US (occurrence: None)
  Receive Date: 20160721
  Receipt Date: 20160721
  Transmission Date: 20161109
  Serious: Yes (Other)
  Sender: FDA-Public Use
  Company Number: None

PATIENT
  Age: 73 Year
  Sex: Female

DRUGS (1)
  1. OTEZLA [Suspect]
     Active Substance: APREMILAST
     Indication: RHEUMATOID ARTHRITIS
     Dosage: PRESENTLY ON MED
     Route: 048
     Dates: start: 201604

REACTIONS (2)
  - Rhinorrhoea [None]
  - Photophobia [None]

NARRATIVE: CASE EVENT DATE: 20160720
